FAERS Safety Report 11460183 (Version 3)
Quarter: 2015Q3

REPORT INFORMATION
  Report Type: Spontaneous
  Country: JP (occurrence: None)
  Receive Date: 20150904
  Receipt Date: 20150916
  Transmission Date: 20151125
  Serious: Yes (Hospitalization)
  Sender: FDA-Public Use
  Company Number: JP-MDT-ADR-2015-01722

PATIENT
  Age: 6 Year
  Sex: Female

DRUGS (1)
  1. GABALON INTRATHECAL 0.05% [Suspect]
     Active Substance: BACLOFEN
     Dosage: 80 MCG/DAY

REACTIONS (6)
  - Fall [None]
  - Skull fracture [None]
  - Extradural haematoma [None]
  - Contusion [None]
  - Device damage [None]
  - Cerebrospinal fluid leakage [None]
